FAERS Safety Report 6361840-5 (Version None)
Quarter: 2009Q3

REPORT INFORMATION
  Report Type: 
  Country: None (occurrence: None)
  Receive Date: 20090918
  Receipt Date: 20090915
  Transmission Date: 20100115
  Serious: Yes (Death, Life-Threatening, Other)
  Sender: FDA-Public Use
  Company Number: JP-JNJFOC-20090902252

PATIENT
  Sex: Male
  Weight: 56 kg

DRUGS (17)
  1. ITRIZOLE [Suspect]
     Route: 042
     Dates: start: 20090821, end: 20090824
  2. ITRIZOLE [Suspect]
     Indication: PULMONARY MYCOSIS
     Route: 042
     Dates: start: 20090821, end: 20090824
  3. EPHEDRA TEAS [Suspect]
     Indication: DRUG USE FOR UNKNOWN INDICATION
     Route: 048
     Dates: start: 20090608, end: 20090820
  4. LEVOFLOXACIN [Suspect]
     Route: 048
     Dates: start: 20090617, end: 20090820
  5. LEVOFLOXACIN [Suspect]
     Indication: PROSTATITIS
     Route: 048
     Dates: start: 20090617, end: 20090820
  6. TAMSULOSIN HYDROCHLORIDE [Concomitant]
     Indication: BENIGN PROSTATIC HYPERPLASIA
     Route: 048
     Dates: start: 20090617
  7. CERNILTON [Concomitant]
     Indication: BENIGN PROSTATIC HYPERPLASIA
     Route: 048
     Dates: start: 20090617
  8. MUCODYNE [Concomitant]
     Route: 048
     Dates: start: 20090821
  9. GARENOXACIN MESILATE HYDRATE [Concomitant]
     Indication: PNEUMONIA
     Route: 048
     Dates: start: 20090821, end: 20090823
  10. CEFMETAZON [Concomitant]
     Indication: PNEUMONIA
     Route: 042
     Dates: start: 20090820, end: 20090821
  11. METHYCOBAL [Concomitant]
     Indication: HERPES ZOSTER
     Route: 048
     Dates: start: 20090615
  12. NEUVITA [Concomitant]
     Indication: HERPES ZOSTER
     Route: 048
     Dates: start: 20090615
  13. UNSPECIFIED HERBAL PRODUCTS [Concomitant]
     Route: 048
  14. FLOMOX [Concomitant]
     Route: 048
     Dates: start: 20090608, end: 20090820
  15. CODEINE PHOSPHATE [Concomitant]
     Route: 048
     Dates: start: 20090608, end: 20090820
  16. PELEX [Concomitant]
     Route: 048
     Dates: start: 20090608, end: 20090820
  17. BIOFERMIN [Concomitant]
     Route: 048
     Dates: start: 20090608, end: 20090820

REACTIONS (2)
  - INTERSTITIAL LUNG DISEASE [None]
  - RESPIRATORY FAILURE [None]
